FAERS Safety Report 23637841 (Version 1)
Quarter: 2024Q1

REPORT INFORMATION
  Report Type: Spontaneous
  Country: ZA (occurrence: ZA)
  Receive Date: 20240315
  Receipt Date: 20240315
  Transmission Date: 20240410
  Serious: Yes (Life-Threatening)
  Sender: FDA-Public Use
  Company Number: ZA-ABBOTT-2024A-1378730

PATIENT
  Age: 57 Year
  Sex: Female

DRUGS (8)
  1. FENOFIBRATE [Suspect]
     Active Substance: FENOFIBRATE
     Indication: Blood cholesterol
     Route: 048
  2. MYRICA [Concomitant]
     Indication: Epilepsy
     Route: 048
  3. SOLAL NIACIN [Concomitant]
     Indication: Product used for unknown indication
     Dosage: SOLAL NIACIN (INOSITOL  HEXANICOTINATE) 35 MG TAKE ONE TABLET TWICE A DAY
     Route: 048
  4. TOUJEO [Concomitant]
     Active Substance: INSULIN GLARGINE
     Indication: Diabetes mellitus
     Dosage: TOUJEO PEN (INSULIN GLARGINE) 300 IU INJECT ?30 UNITS DAILY
     Route: 058
  5. EUTHYROX [Concomitant]
     Active Substance: LEVOTHYROXINE SODIUM
     Indication: Hypothyroidism
     Dosage: IN THE MORNING
     Route: 048
  6. NEUROBION [Concomitant]
     Active Substance: CYANOCOBALAMIN\PYRIDOXINE\THIAMINE
     Indication: Product used for unknown indication
     Dosage: NEUROBION (VITAMINS B12, B1, B6,) TAKE ONE ?TABLET DAILY
     Route: 048
  7. DICLOFLAM B CURRANT [Concomitant]
     Indication: Product used for unknown indication
     Dosage: DICLOFLAM B CURRANT (DICLOFENAC) 50 MG DISSOLVE ONE IN WATER DAILY
     Route: 048
  8. CALCIUM [Concomitant]
     Active Substance: CALCIUM
     Indication: Product used for unknown indication
     Dosage: CALCIUM SANDOZ (CALCIUM LACTATE GLUCONATE AND CALCIUM CARBONATE)?500 MG DISSOLVE ONE IN WATER DAILY
     Route: 048

REACTIONS (1)
  - Cerebrovascular accident [Unknown]

NARRATIVE: CASE EVENT DATE: 20240202
